FAERS Safety Report 4972091-0 (Version None)
Quarter: 2006Q2

REPORT INFORMATION
  Report Type: 
  Country: None (occurrence: None)
  Receive Date: 20060413
  Receipt Date: 20060405
  Transmission Date: 20061013
  Serious: Yes (Other)
  Sender: FDA-Public Use
  Company Number: US-SANOFI-SYNTHELABO-A03200602134

PATIENT
  Sex: Male
  Weight: 113.38 kg

DRUGS (7)
  1. PLAVIX [Suspect]
     Indication: THROMBOSIS
     Route: 048
     Dates: start: 20060328, end: 20060404
  2. PRILOSEC [Concomitant]
     Route: 048
  3. LISINOPRIL [Concomitant]
     Route: 048
     Dates: start: 20051201
  4. DYNACIRC CR [Concomitant]
     Route: 048
     Dates: start: 20051201
  5. CARDURA [Concomitant]
     Route: 048
     Dates: end: 20060403
  6. CELEBREX [Concomitant]
     Route: 048
  7. AVODART [Concomitant]
     Route: 048
     Dates: start: 20060314

REACTIONS (2)
  - CALCULUS URINARY [None]
  - URINARY RETENTION [None]
